FAERS Safety Report 5588325-8 (Version None)
Quarter: 2008Q1

REPORT INFORMATION
  Report Type: 
  Country: None (occurrence: None)
  Receive Date: 20080111
  Receipt Date: 20080104
  Transmission Date: 20080703
  Serious: Yes (Hospitalization)
  Sender: FDA-Public Use
  Company Number: CA-ELI_LILLY_AND_COMPANY-CA200711006042

PATIENT
  Sex: Female

DRUGS (4)
  1. ZYPREXA [Suspect]
     Indication: ANXIETY
     Dosage: 2.5 MG, 2/D
     Route: 048
  2. ZYPREXA [Suspect]
     Dosage: UNK, UNK
     Dates: end: 20071122
  3. CELEXA [Concomitant]
  4. EFFEXOR [Concomitant]

REACTIONS (2)
  - OVERDOSE [None]
  - SEROTONIN SYNDROME [None]
